FAERS Safety Report 18616729 (Version 1)
Quarter: 2020Q4

REPORT INFORMATION
  Report Type: Spontaneous
  Country: US (occurrence: US)
  Receive Date: 20201215
  Receipt Date: 20201215
  Transmission Date: 20210114
  Serious: No
  Sender: FDA-Public Use
  Company Number: US-AUROBINDO-AUR-APL-2020-027163

PATIENT
  Age: 92 Year
  Sex: Female

DRUGS (2)
  1. MIRTAZAPINE TABLETS 30 MG [Suspect]
     Active Substance: MIRTAZAPINE
     Indication: PRODUCT USED FOR UNKNOWN INDICATION
     Dosage: 1 DOSAGE FORM, BEFORE BED
     Route: 048
     Dates: start: 20200526
  2. ONDANSETRON HYDROCHLORIDE TABLETS 4 MG [Suspect]
     Active Substance: ONDANSETRON HYDROCHLORIDE
     Indication: NAUSEA
     Dosage: 1 DOSAGE FORM, TWO TIMES A DAY, AS NEEDED
     Route: 048

REACTIONS (7)
  - Nausea [Unknown]
  - Feeling of body temperature change [Unknown]
  - Product use complaint [Unknown]
  - Malaise [Unknown]
  - Hyperhidrosis [Unknown]
  - Asthenia [Unknown]
  - Pain [Unknown]

NARRATIVE: CASE EVENT DATE: 20200527
